FAERS Safety Report 10038809 (Version 1)
Quarter: 2014Q1

REPORT INFORMATION
  Report Type: Spontaneous
  Country: US (occurrence: US)
  Receive Date: 20140326
  Receipt Date: 20140326
  Transmission Date: 20141002
  Serious: Yes (Hospitalization)
  Sender: FDA-Public Use
  Company Number: US-GLAXOSMITHKLINE-A1065428A

PATIENT
  Age: 34 Year
  Sex: Female

DRUGS (5)
  1. LAMICTAL [Suspect]
     Indication: BIPOLAR DISORDER
     Dosage: 50MG PER DAY
     Route: 048
     Dates: start: 2000
  2. LAMOTRIGINE [Suspect]
     Indication: BIPOLAR DISORDER
     Route: 065
  3. STAVZOR [Suspect]
     Indication: DISTURBANCE IN ATTENTION
     Dosage: 80MG PER DAY
     Route: 065
     Dates: start: 2005
  4. DEPAKOTE [Suspect]
     Indication: PRODUCT USED FOR UNKNOWN INDICATION
     Route: 065
  5. LEVOTHYROXINE [Concomitant]

REACTIONS (9)
  - Tachyphrenia [Recovering/Resolving]
  - Delusion [Recovering/Resolving]
  - Anxiety [Recovering/Resolving]
  - Acne [Recovering/Resolving]
  - Disturbance in attention [Recovering/Resolving]
  - Anger [Recovering/Resolving]
  - Aggression [Recovering/Resolving]
  - Overwork [Recovering/Resolving]
  - Screaming [Recovering/Resolving]
